FAERS Safety Report 18787098 (Version 1)
Quarter: 2021Q1

REPORT INFORMATION
  Report Type: Spontaneous
  Country: US (occurrence: US)
  Receive Date: 20210125
  Receipt Date: 20210125
  Transmission Date: 20210419
  Serious: No
  Sender: FDA-Public Use
  Company Number: US-ROCHE-2632672

PATIENT

DRUGS (5)
  1. RITUXAN [Suspect]
     Active Substance: RITUXIMAB
     Indication: PRODUCT USED FOR UNKNOWN INDICATION
     Route: 065
  2. CELEBREX [Concomitant]
     Active Substance: CELECOXIB
  3. XELJANZ XR [Suspect]
     Active Substance: TOFACITINIB CITRATE
     Indication: PRODUCT USED FOR UNKNOWN INDICATION
     Route: 048
     Dates: start: 20200622
  4. ENBREL [Suspect]
     Active Substance: ETANERCEPT
     Indication: PRODUCT USED FOR UNKNOWN INDICATION
     Route: 065
  5. PREDNISONE. [Concomitant]
     Active Substance: PREDNISONE

REACTIONS (1)
  - Hypersensitivity [Unknown]
